FAERS Safety Report 17790664 (Version 1)
Quarter: 2020Q2

REPORT INFORMATION
  Report Type: Spontaneous
  Country: US (occurrence: US)
  Receive Date: 20200514
  Receipt Date: 20200514
  Transmission Date: 20200714
  Serious: Yes (Death)
  Sender: FDA-Public Use
  Company Number: None

PATIENT
  Sex: Male

DRUGS (17)
  1. TACROLIMUS  1MG CAP [Suspect]
     Active Substance: TACROLIMUS
     Indication: RENAL TRANSPLANT
     Dosage: ?          OTHER FREQUENCY:QAM - QPM;?
     Route: 048
     Dates: start: 20170204
  2. CEPHALEXIN. [Suspect]
     Active Substance: CEPHALEXIN
  3. LORAZEPAM. [Concomitant]
     Active Substance: LORAZEPAM
  4. MAG OXIDE [Concomitant]
     Active Substance: MAGNESIUM OXIDE
  5. MULTI-VITAMIN [Concomitant]
     Active Substance: .ALPHA.-TOCOPHEROL ACETATE, DL-\ASCORBIC ACID\CYANOCOBALAMIN\FLUORIDE ION\FOLIC ACID\NIACIN\PYRIDOXINE\RIBOFLAVIN\THIAMINE\VITAMIN A\VITAMIN D
  6. OXYCODONE [Concomitant]
     Active Substance: OXYCODONE
  7. LEVOTHYROXIN [Concomitant]
     Active Substance: LEVOTHYROXINE
  8. MORPHINE SUL [Concomitant]
     Active Substance: MORPHINE SULFATE
  9. ONDANSETRON [Concomitant]
     Active Substance: ONDANSETRON
  10. PREDNISONE. [Concomitant]
     Active Substance: PREDNISONE
  11. AMOX/K CLAV [Concomitant]
     Active Substance: AMOXICILLIN\CLAVULANATE POTASSIUM
  12. BAYER CHILD CHW [Concomitant]
  13. METOPRO/HCTZ [Concomitant]
  14. DEXAMETHASON [Concomitant]
     Active Substance: DEXAMETHASONE
  15. HYDROCO/APAP [Concomitant]
     Active Substance: ACETAMINOPHEN\HYDROCODONE
  16. METOPROL SUC [Concomitant]
  17. PROCHLORPER [Concomitant]

REACTIONS (1)
  - Death [None]
